FAERS Safety Report 17521642 (Version 7)
Quarter: 2020Q3

REPORT INFORMATION
  Report Type: Spontaneous
  Country: FR (occurrence: FR)
  Receive Date: 20200310
  Receipt Date: 20200825
  Transmission Date: 20201102
  Serious: Yes (Death, Hospitalization, Other)
  Sender: FDA-Public Use
  Company Number: FR-MYLANLABS-2020M1024477

PATIENT
  Age: 71 Year
  Sex: Male

DRUGS (54)
  1. DIACEREIN [Suspect]
     Active Substance: DIACEREIN
     Dosage: 50 MG, 2X/DAY (ONCE EVERY 12HOURS)
     Route: 048
  2. ZOPICLONE [Suspect]
     Active Substance: ZOPICLONE
     Indication: PRODUCT USED FOR UNKNOWN INDICATION
     Dosage: 15 MG, DAILY
     Route: 048
  3. ALTACE [Suspect]
     Active Substance: RAMIPRIL
     Indication: PRODUCT USED FOR UNKNOWN INDICATION
     Dosage: 5 MG, DAILY
     Route: 048
  4. NITROGLYCERIN. [Suspect]
     Active Substance: NITROGLYCERIN
     Dosage: UNK
  5. RAMIPRIL. [Suspect]
     Active Substance: RAMIPRIL
     Indication: PRODUCT USED FOR UNKNOWN INDICATION
     Dosage: 5 MILLIGRAM, QD
     Route: 048
  6. URBANYL [Suspect]
     Active Substance: CLOBAZAM
     Indication: PRODUCT USED FOR UNKNOWN INDICATION
     Dosage: 10 MG, 3X/DAY
     Route: 048
  7. PROPRANOLOL [Suspect]
     Active Substance: PROPRANOLOL HYDROCHLORIDE
     Indication: PRODUCT USED FOR UNKNOWN INDICATION
     Dosage: 20 MILLIGRAM, QD
     Route: 048
  8. FUROSEMIDE. [Suspect]
     Active Substance: FUROSEMIDE
     Indication: PRODUCT USED FOR UNKNOWN INDICATION
     Dosage: 40 MG, DAILY
     Route: 048
  9. PARACETAMOL [Suspect]
     Active Substance: ACETAMINOPHEN
     Dosage: 100 MG, BID (ONCE EVERY 12HOURS
     Route: 048
  10. ACETYLSALICYLIC ACID [Suspect]
     Active Substance: ASPIRIN
     Dosage: 250 MG, QD
     Route: 048
  11. ISOPTINE [Suspect]
     Active Substance: VERAPAMIL HYDROCHLORIDE
     Indication: PRODUCT USED FOR UNKNOWN INDICATION
     Dosage: 240 MILLIGRAM, QD(ORA240 MG, QD)
     Route: 048
  12. NITROGLYCERIN. [Suspect]
     Active Substance: NITROGLYCERIN
     Dosage: 10 MILLIGRAM, QD
     Route: 048
  13. ESOMEPRAZOLE MAGNESIUM. [Suspect]
     Active Substance: ESOMEPRAZOLE MAGNESIUM
     Indication: PRODUCT USED FOR UNKNOWN INDICATION
     Dosage: 20 MILLIGRAM, QD
     Route: 048
  14. DIACEREIN [Suspect]
     Active Substance: DIACEREIN
     Indication: PRODUCT USED FOR UNKNOWN INDICATION
     Dosage: 50 MG, 2X/DAY (ONCE EVERY 12HOURS)
     Route: 048
  15. ZOCOR [Suspect]
     Active Substance: SIMVASTATIN
     Indication: PRODUCT USED FOR UNKNOWN INDICATION
     Dosage: 20 MILLIGRAM, QD(20 MG, QD)
     Route: 048
  16. LASIX [Suspect]
     Active Substance: FUROSEMIDE
     Indication: PRODUCT USED FOR UNKNOWN INDICATION
     Dosage: 40 MILLIGRAM, QD
     Route: 048
  17. TRIHEXYPHENIDYL HYDROCHLORIDE. [Suspect]
     Active Substance: TRIHEXYPHENIDYL HYDROCHLORIDE
     Indication: PRODUCT USED FOR UNKNOWN INDICATION
     Dosage: 1 DF, DAILY
     Route: 048
  18. SEREVENT DISKUS [Suspect]
     Active Substance: SALMETEROL XINAFOATE
     Indication: PRODUCT USED FOR UNKNOWN INDICATION
     Dosage: 1 DF,BID (1 PUFF) (ONCE EVERY 12HOURS)
     Route: 045
  19. SALBUTAMOL [Suspect]
     Active Substance: ALBUTEROL
     Dosage: UNK
  20. DETURGYLONE                        /05713901/ [Concomitant]
     Indication: PRODUCT USED FOR UNKNOWN INDICATION
     Dosage: 1 DOSAGE FORM, QD(1 DF, QD)
     Route: 045
  21. PARACETAMOL [Suspect]
     Active Substance: ACETAMINOPHEN
     Indication: PRODUCT USED FOR UNKNOWN INDICATION
     Dosage: 200 MILLIGRAM, QD(100 MG, BID)
     Route: 048
  22. PARACETAMOL [Suspect]
     Active Substance: ACETAMINOPHEN
     Dosage: 2000 MILLIGRAM, QD (1000MG, BID)
     Route: 048
  23. OMEPRAZOLE. [Suspect]
     Active Substance: OMEPRAZOLE
     Indication: PRODUCT USED FOR UNKNOWN INDICATION
     Dosage: 20 MILLIGRAM, QD
     Route: 048
  24. GLYCERYL TRINITRATE [Suspect]
     Active Substance: NITROGLYCERIN
     Indication: PRODUCT USED FOR UNKNOWN INDICATION
     Dosage: 10 MILLIGRAM, QD(10 MG, QD)
  25. MIANSERIN [Suspect]
     Active Substance: MIANSERIN
     Indication: PRODUCT USED FOR UNKNOWN INDICATION
     Dosage: 60 MILLIGRAM, QD
     Route: 048
  26. VERAPAMIL HYDROCHLORIDE. [Suspect]
     Active Substance: VERAPAMIL HYDROCHLORIDE
     Dosage: 240 MG, UNK
  27. NITROGLYCERIN. [Suspect]
     Active Substance: NITROGLYCERIN
     Indication: PRODUCT USED FOR UNKNOWN INDICATION
     Dosage: 10 MILLIGRAM, QD
  28. PARACETAMOL [Suspect]
     Active Substance: ACETAMINOPHEN
     Dosage: 100 MILLIGRAM
     Route: 048
  29. VERAPAMIL HYDROCHLORIDE. [Suspect]
     Active Substance: VERAPAMIL HYDROCHLORIDE
     Indication: PRODUCT USED FOR UNKNOWN INDICATION
     Dosage: 240 MILLIGRAM QD
     Route: 048
  30. CLOBAZAM. [Suspect]
     Active Substance: CLOBAZAM
     Indication: PRODUCT USED FOR UNKNOWN INDICATION
     Dosage: 10 MG, TID
     Route: 048
  31. RIVOTRIL [Suspect]
     Active Substance: CLONAZEPAM
     Indication: PRODUCT USED FOR UNKNOWN INDICATION
     Dosage: 4 MILLIGRAM, QD(4 MG, QD)
     Route: 048
  32. TRIHEXYPHENIDYL HYDROCHLORIDE. [Suspect]
     Active Substance: TRIHEXYPHENIDYL HYDROCHLORIDE
     Dosage: 1 DOSAGE FORM, QD
  33. CLONAZEPAM. [Suspect]
     Active Substance: CLONAZEPAM
     Indication: PRODUCT USED FOR UNKNOWN INDICATION
     Dosage: 4 MG, DAILY
     Route: 048
  34. ASPEGIC                            /00002703/ [Suspect]
     Active Substance: ASPIRIN DL-LYSINE
     Indication: PRODUCT USED FOR UNKNOWN INDICATION
     Dosage: 250 MILLIGRAM, QD
     Route: 048
  35. CELEBREX [Suspect]
     Active Substance: CELECOXIB
     Dosage: UNK
  36. PREDNAZOLINE [Suspect]
     Active Substance: PREDNAZOLINE
     Indication: PRODUCT USED FOR UNKNOWN INDICATION
     Dosage: 1 PUFF QD
     Route: 045
  37. PREDNAZOLINE [Suspect]
     Active Substance: PREDNAZOLINE
     Dosage: UNK
  38. PARACETAMOL [Suspect]
     Active Substance: ACETAMINOPHEN
     Dosage: 1000 MG, 2X/DAY (ONCE EVERY 12HOURS)
     Route: 048
  39. ACETYLSALICYLIC ACID [Suspect]
     Active Substance: ASPIRIN
     Indication: PRODUCT USED FOR UNKNOWN INDICATION
     Dosage: 20 MILLIGRAM, QD
     Route: 048
  40. OMEPRAZOLE                         /00661203/ [Suspect]
     Active Substance: OMEPRAZOLE MAGNESIUM
     Indication: PRODUCT USED FOR UNKNOWN INDICATION
     Dosage: 20 MILLIGRAM, QD
     Route: 048
  41. VENTOLIN [Suspect]
     Active Substance: ALBUTEROL SULFATE
     Indication: PRODUCT USED FOR UNKNOWN INDICATION
     Dosage: UNK
     Route: 045
  42. SALMETEROL XINAFOATE [Suspect]
     Active Substance: SALMETEROL XINAFOATE
     Indication: PRODUCT USED FOR UNKNOWN INDICATION
     Dosage: 1 PUFF , BID
     Route: 045
  43. SALMETEROL XINAFOATE [Suspect]
     Active Substance: SALMETEROL XINAFOATE
     Dosage: 1 DF,BID (1 PUFF) (ONCE EVERY 12HOURS)
     Route: 045
  44. PREDNAZOLINE [Suspect]
     Active Substance: PREDNAZOLINE
     Dosage: 1 DF, QD
  45. POLYETHYLENE GLYCOL [Suspect]
     Active Substance: POLYETHYLENE GLYCOLS
     Indication: PRODUCT USED FOR UNKNOWN INDICATION
     Dosage: 2 DOSAGE FORM, QD
  46. GLYCERYL TRINITRATE [Suspect]
     Active Substance: NITROGLYCERIN
     Dosage: 10 MG, DAILY
  47. PIPAMPERONE [Suspect]
     Active Substance: PIPAMPERONE
     Indication: PRODUCT USED FOR UNKNOWN INDICATION
     Dosage: 20 MILLIGRAM, QD
     Route: 048
  48. ASPEGIC                            /00002703/ [Suspect]
     Active Substance: ASPIRIN DL-LYSINE
     Dosage: 20 MG,QD
     Route: 048
  49. MACROGOL 3350 [Suspect]
     Active Substance: POLYETHYLENE GLYCOL 3350
     Indication: PRODUCT USED FOR UNKNOWN INDICATION
     Dosage: 2 DOSAGE FORM, QD
     Route: 048
  50. CELEBREX [Suspect]
     Active Substance: CELECOXIB
     Indication: PRODUCT USED FOR UNKNOWN INDICATION
     Dosage: UNK
  51. URBANYL [Suspect]
     Active Substance: CLOBAZAM
     Dosage: 10 MG, 3X/DAY (ONCE EVERY 8HOURS)
     Route: 048
  52. SEREVENT DISKUS [Suspect]
     Active Substance: SALMETEROL XINAFOATE
     Dosage: 1 DOSAGE FORM, BID
     Route: 045
  53. SALBUTAMOL [Suspect]
     Active Substance: ALBUTEROL
     Indication: PRODUCT USED FOR UNKNOWN INDICATION
     Dosage: UNK
     Route: 045
  54. OXYGEN. [Concomitant]
     Active Substance: OXYGEN
     Indication: PRODUCT USED FOR UNKNOWN INDICATION
     Dosage: UNK

REACTIONS (13)
  - Areflexia [Fatal]
  - Cerebrovascular accident [Fatal]
  - Brain scan abnormal [Fatal]
  - Respiratory distress [Fatal]
  - Respiratory failure [Fatal]
  - Ischaemic stroke [Fatal]
  - Cerebral artery thrombosis [Fatal]
  - Disease recurrence [Fatal]
  - Nausea [Fatal]
  - Facial paralysis [Fatal]
  - Hemiplegia [Fatal]
  - Off label use [Fatal]
  - Product use issue [Fatal]
